FAERS Safety Report 10745287 (Version 1)
Quarter: 2015Q1

REPORT INFORMATION
  Report Type: Spontaneous
  Country: US (occurrence: None)
  Receive Date: 20150112
  Receipt Date: 20150112
  Transmission Date: 20150721
  Serious: Yes (Other)
  Sender: FDA-Public Use
  Company Number: 1322687

PATIENT
  Age: 84 Year
  Sex: Female

DRUGS (2)
  1. ALTEPLASE (ALTEPLASE) [Suspect]
     Active Substance: ALTEPLASE
     Indication: ISCHAEMIC STROKE
     Route: 013
  2. AMIODARONE [Concomitant]
     Active Substance: AMIODARONE

REACTIONS (2)
  - Drug ineffective [None]
  - Intraventricular haemorrhage [None]
